FAERS Safety Report 6722047-2 (Version None)
Quarter: 2010Q2

REPORT INFORMATION
  Report Type: 
  Country: None (occurrence: None)
  Receive Date: 20100512
  Receipt Date: 20100503
  Transmission Date: 20101027
  Serious: Yes (Hospitalization)
  Sender: FDA-Public Use
  Company Number: US-B.I. PHARMACEUTICALS,INC./RIDGEFIELD-2010-BP-05057BP

PATIENT
  Sex: Female

DRUGS (3)
  1. DULCOLAX [Suspect]
     Indication: CONSTIPATION
     Dates: start: 20091101
  2. ANTIBIOTICS [Suspect]
  3. AMLODIPINE [Concomitant]
     Indication: HYPERTENSION
     Route: 048

REACTIONS (6)
  - AGEUSIA [None]
  - ALOPECIA [None]
  - DRUG DISPENSING ERROR [None]
  - ESCHERICHIA INFECTION [None]
  - VAGINAL ODOUR [None]
  - VULVOVAGINAL BURNING SENSATION [None]
